FAERS Safety Report 16981596 (Version 1)
Quarter: 2019Q4

REPORT INFORMATION
  Report Type: Report from Study
  Country: DE (occurrence: DE)
  Receive Date: 20191101
  Receipt Date: 20191101
  Transmission Date: 20200122
  Serious: Yes (Hospitalization)
  Sender: FDA-Public Use
  Company Number: DE-CELLTRION INC.-2019DE025966

PATIENT

DRUGS (7)
  1. INFLECTRA [Suspect]
     Active Substance: INFLIXIMAB-DYYB
     Dosage: 300 MG, UNK
     Dates: start: 20190607, end: 20190607
  2. INFLECTRA [Suspect]
     Active Substance: INFLIXIMAB-DYYB
     Dosage: 300 MG, UNK
     Dates: start: 20181030, end: 20181030
  3. INFLECTRA [Suspect]
     Active Substance: INFLIXIMAB-DYYB
     Dosage: 300 MG, UNK
     Dates: start: 20190729, end: 20190729
  4. INFLECTRA [Suspect]
     Active Substance: INFLIXIMAB-DYYB
     Dosage: 300 MG, UNK
     Dates: start: 20181219, end: 20181219
  5. INFLECTRA [Suspect]
     Active Substance: INFLIXIMAB-DYYB
     Dosage: 300 MG, UNK
     Dates: start: 20190408, end: 20190408
  6. INFLECTRA [Suspect]
     Active Substance: INFLIXIMAB-DYYB
     Dosage: 300 MG, UNK
     Dates: start: 20190930
  7. INFLECTRA [Suspect]
     Active Substance: INFLIXIMAB-DYYB
     Dosage: 300 MG, UNK
     Dates: start: 20190207, end: 20190207

REACTIONS (1)
  - Coronary artery disease [Recovered/Resolved]

NARRATIVE: CASE EVENT DATE: 20190320
